FAERS Safety Report 23040063 (Version 1)
Quarter: 2023Q4

REPORT INFORMATION
  Report Type: Spontaneous
  Country: ES (occurrence: ES)
  Receive Date: 20231006
  Receipt Date: 20231006
  Transmission Date: 20240110
  Serious: Yes (Other)
  Sender: FDA-Public Use
  Company Number: ES-MLMSERVICE-20230925-4558258-1

PATIENT
  Sex: Female

DRUGS (13)
  1. DOXORUBICIN [Suspect]
     Active Substance: DOXORUBICIN
     Indication: Ovarian epithelial cancer
     Dosage: THIRD LINE (30 MG/M2) EVERY 21 DAYS, SIX CYCLE
     Route: 065
     Dates: start: 201704
  2. DOXORUBICIN [Suspect]
     Active Substance: DOXORUBICIN
     Indication: Ovarian cancer stage III
     Dosage: THIRD LINE 25 MG/M2, SIX CYCLE TO 10 CYCLES
     Route: 065
     Dates: start: 201704, end: 201710
  3. DOXORUBICIN [Suspect]
     Active Substance: DOXORUBICIN
     Dosage: SIXTH LINE (40 MG/M2 EVERY 28 DAYS), THREE CYCLES.
     Route: 065
     Dates: start: 202001, end: 202003
  4. TRABECTEDIN [Suspect]
     Active Substance: TRABECTEDIN
     Indication: Ovarian epithelial cancer
     Dosage: THIRD LINE (1.1 MG/M2) EVERY 21 DAYS, SIX CYCLE
     Route: 065
     Dates: start: 201704
  5. TRABECTEDIN [Suspect]
     Active Substance: TRABECTEDIN
     Indication: Ovarian cancer stage III
     Dosage: THIRD LINE (0.9 MG/M2) EVERY 21 DAYS, SIX CYCLE TO 10 CYCLES
     Route: 065
  6. GEMCITABINE [Concomitant]
     Active Substance: GEMCITABINE
     Indication: Ovarian epithelial cancer
     Dosage: FIFTH CYCLE 1000 MG/M2, DAYS 1 AND 8) EVERY 21 DAYS, TOTAL OF 26 CYCLES
     Route: 065
     Dates: start: 201805, end: 201912
  7. GEMCITABINE [Concomitant]
     Active Substance: GEMCITABINE
     Indication: Ovarian cancer stage III
  8. BEVACIZUMAB [Concomitant]
     Active Substance: BEVACIZUMAB
     Indication: Ovarian epithelial cancer
     Dosage: FIFTH CYCLE (15 MG/M2, DAY 1) EVERY 21 DAYS, TOTAL OF 26 CYCLES
     Route: 065
     Dates: start: 201805, end: 201912
  9. BEVACIZUMAB [Concomitant]
     Active Substance: BEVACIZUMAB
     Indication: Ovarian cancer stage III
  10. CARBOPLATIN [Concomitant]
     Active Substance: CARBOPLATIN
     Indication: Ovarian epithelial cancer
     Dosage: (AUC5)TOTAL FIVE CYCLES, FOURTH LINE
     Route: 065
     Dates: start: 201801, end: 201804
  11. CARBOPLATIN [Concomitant]
     Active Substance: CARBOPLATIN
     Indication: Ovarian cancer stage III
  12. PACLITAXEL [Concomitant]
     Active Substance: PACLITAXEL
     Indication: Ovarian epithelial cancer
     Dosage: (175 MG/M2) EVERY 21 DAYS, TOTAL FIVE CYCLES, FOURTH LINE
     Route: 065
     Dates: start: 201801, end: 201804
  13. PACLITAXEL [Concomitant]
     Active Substance: PACLITAXEL
     Indication: Ovarian cancer stage III

REACTIONS (3)
  - Intestinal obstruction [Unknown]
  - Thrombocytopenia [Unknown]
  - Anaemia [Unknown]

NARRATIVE: CASE EVENT DATE: 20170101
